FAERS Safety Report 7091886-3 (Version None)
Quarter: 2010Q4

REPORT INFORMATION
  Report Type: 
  Country: None (occurrence: None)
  Receive Date: 20101101
  Receipt Date: 20101020
  Transmission Date: 20110411
  Serious: Yes (Hospitalization)
  Sender: FDA-Public Use
  Company Number: 1000016566

PATIENT
  Age: 80 Year
  Sex: Female

DRUGS (5)
  1. LEXAPRO [Suspect]
     Indication: DEPRESSION
     Dosage: 10 MG (10 MG,1 IN 1 D),ORAL
     Route: 048
     Dates: start: 20100915, end: 20101023
  2. HYDROCHLOROTHIAZIDE [Concomitant]
  3. SOLKEEN (METOPROLOL TARTRATE) (METOPROLOL TARTRATE) [Concomitant]
  4. LORAZEPAM (LORAZEPAM) (TABLETS) (LORAZEPAM) [Concomitant]
  5. XALATAN [Concomitant]

REACTIONS (7)
  - ELECTROLYTE IMBALANCE [None]
  - FEELING ABNORMAL [None]
  - HYPERNATRAEMIA [None]
  - HYPOKALAEMIA [None]
  - NAUSEA [None]
  - RHABDOMYOLYSIS [None]
  - SOMNOLENCE [None]
